FAERS Safety Report 19001552 (Version 2)
Quarter: 2022Q3

REPORT INFORMATION
  Report Type: Spontaneous
  Country: US (occurrence: None)
  Receive Date: 20210312
  Receipt Date: 20220907
  Transmission Date: 20221026
  Serious: No
  Sender: FDA-Public Use
  Company Number: US-FARMAPROD-202010-1369

PATIENT
  Sex: Male

DRUGS (6)
  1. OXERVATE [Suspect]
     Active Substance: CENEGERMIN-BKBJ
     Indication: Neurotrophic keratopathy
     Route: 047
     Dates: start: 20200828, end: 20201023
  2. OXERVATE [Suspect]
     Active Substance: CENEGERMIN-BKBJ
     Indication: Ulcerative keratitis
     Route: 047
     Dates: start: 20210122, end: 20210319
  3. OXERVATE [Suspect]
     Active Substance: CENEGERMIN-BKBJ
     Indication: Hypoaesthesia eye
     Route: 047
     Dates: start: 20220217, end: 20220414
  4. OXERVATE [Suspect]
     Active Substance: CENEGERMIN-BKBJ
     Route: 047
     Dates: start: 20220421
  5. ASPIRIN [Concomitant]
     Active Substance: ASPIRIN
  6. METFORMIN HYDROCHLORIDE [Concomitant]
     Active Substance: METFORMIN HYDROCHLORIDE

REACTIONS (4)
  - Headache [Not Recovered/Not Resolved]
  - Eye pain [Unknown]
  - Corneal transplant [Unknown]
  - Eye infection [Unknown]
